FAERS Safety Report 8400489-7 (Version None)
Quarter: 2012Q2

REPORT INFORMATION
  Report Type: 
  Country: None (occurrence: None)
  Receive Date: 20120531
  Receipt Date: 20120522
  Transmission Date: 20120825
  Serious: Yes (Death, Life-Threatening, Hospitalization)
  Sender: FDA-Public Use
  Company Number: HU-NOVOPROD-352244

PATIENT
  Age: 60 Year
  Sex: Female

DRUGS (2)
  1. VICTOZA [Suspect]
     Dosage: 1.2 MG, QD (FOR 1 WEEK)
     Route: 065
     Dates: start: 20100101, end: 20100101
  2. VICTOZA [Suspect]
     Indication: TYPE 2 DIABETES MELLITUS
     Dosage: 0.6 MG, QD (FOR 2 WEEKS)
     Route: 065
     Dates: start: 20100101, end: 20100101

REACTIONS (4)
  - DEATH [None]
  - ABDOMINAL PAIN [None]
  - COMA [None]
  - VOMITING [None]
